FAERS Safety Report 7789817-3 (Version None)
Quarter: 2011Q3

REPORT INFORMATION
  Report Type: 
  Country: None (occurrence: None)
  Receive Date: 20110930
  Receipt Date: 20110114
  Transmission Date: 20111222
  Serious: No
  Sender: FDA-Public Use
  Company Number: US-ASTRAZENECA-2010SE09842

PATIENT
  Age: 74 Year
  Sex: Female

DRUGS (2)
  1. ARIMIDEX [Suspect]
     Route: 048
  2. ARIMIDEX [Suspect]
     Dosage: TOOK AN EXTRA TABLET 3 HOURS APART.
     Route: 048

REACTIONS (2)
  - INCORRECT DOSE ADMINISTERED [None]
  - DIZZINESS [None]
